FAERS Safety Report 8863146 (Version 1)
Quarter: 2012Q4

REPORT INFORMATION
  Report Type: 
  Country: KR (occurrence: KR)
  Receive Date: 20121026
  Receipt Date: 20121026
  Transmission Date: 20130627
  Serious: Yes (Death)
  Sender: FDA-Public Use
  Company Number: KR-ROCHE-1147755

PATIENT
  Sex: Female

DRUGS (3)
  1. TRASTUZUMAB [Suspect]
     Indication: BREAST CANCER
     Dosage: Loading dose
     Route: 042
  2. TRASTUZUMAB [Suspect]
     Route: 042
  3. PACLITAXEL [Suspect]
     Indication: BREAST CANCER
     Route: 042

REACTIONS (2)
  - Pneumonia [Fatal]
  - Septic shock [Fatal]
